FAERS Safety Report 4990650-6 (Version None)
Quarter: 2006Q2

REPORT INFORMATION
  Report Type: 
  Country: None (occurrence: None)
  Receive Date: 20060427
  Receipt Date: 20060410
  Transmission Date: 20061013
  Serious: Yes (Other)
  Sender: FDA-Public Use
  Company Number: 2006BH007778

PATIENT
  Age: 33 Year
  Sex: Female

DRUGS (3)
  1. LACTATED RINGER'S [Suspect]
     Indication: FLUID REPLACEMENT
     Dosage: IV
     Route: 042
     Dates: start: 20060223, end: 20060223
  2. OXYTOCIN [Concomitant]
  3. CLINDAMYCIN [Concomitant]

REACTIONS (6)
  - DYSPHAGIA [None]
  - HYPOAESTHESIA ORAL [None]
  - HYPOTENSION [None]
  - INFUSION RELATED REACTION [None]
  - OBSTETRIC PROCEDURE COMPLICATION [None]
  - SWOLLEN TONGUE [None]
